FAERS Safety Report 6273315-2 (Version None)
Quarter: 2009Q3

REPORT INFORMATION
  Report Type: 
  Country: None (occurrence: None)
  Receive Date: 20090715
  Receipt Date: 20090630
  Transmission Date: 20100115
  Serious: Yes (Death, Hospitalization)
  Sender: FDA-Public Use
  Company Number: B0583096A

PATIENT
  Age: 63 Year
  Sex: Male

DRUGS (8)
  1. ZIDOVUDINE [Suspect]
     Indication: HIV INFECTION
     Dates: start: 19920101
  2. LAMIVUDINE [Suspect]
     Indication: HIV INFECTION
     Dates: start: 19970101
  3. ABACAVIR SULFATE [Suspect]
     Indication: HIV INFECTION
     Dates: start: 19970101
  4. ZALCITABINE (FORMULATION UNKNOWN) (ZALCITABINE) [Suspect]
     Indication: HIV INFECTION
     Dates: start: 19940101
  5. SAQUINAVIR (FORMULATION UNKNOWN) (SAQUINAVIR) [Suspect]
     Indication: HIV INFECTION
     Dates: start: 19970101
  6. EFAVIRENZ [Suspect]
     Indication: HIV INFECTION
     Dates: start: 20000101
  7. TENOFOVIR DISOPROXIL FUMARATE [Suspect]
     Indication: HIV INFECTION
     Dates: start: 20020401
  8. EMTRICITABINE (FORMULATION UNKNOWN) (EMTRICITABINE) [Suspect]
     Indication: HIV INFECTION

REACTIONS (5)
  - ACUTE MYELOID LEUKAEMIA [None]
  - MYELODYSPLASTIC SYNDROME [None]
  - PNEUMONIA [None]
  - RESPIRATORY FAILURE [None]
  - WEIGHT DECREASED [None]
